FAERS Safety Report 8187860-6 (Version None)
Quarter: 2012Q1

REPORT INFORMATION
  Report Type: 
  Country: None (occurrence: None)
  Receive Date: 20120306
  Receipt Date: 20120229
  Transmission Date: 20120608
  Serious: Yes (Hospitalization, Other)
  Sender: FDA-Public Use
  Company Number: US-PFIZER INC-2009314323

PATIENT
  Sex: Female
  Weight: 9 kg

DRUGS (10)
  1. PHENOBARBITAL [Concomitant]
     Dosage: 20 MG, 2X/DAY
     Route: 048
  2. VALIUM [Concomitant]
     Dosage: 6 MG, UNK
  3. DILANTIN [Suspect]
     Dosage: 50 MG, 2X/DAY
     Route: 048
     Dates: start: 20080808, end: 20080814
  4. FOSPHENYTOIN [Concomitant]
     Dosage: UNK
  5. TRILEPTAL [Concomitant]
     Dosage: UNK
  6. ATIVAN [Concomitant]
     Dosage: 1.2 MG, UNK
  7. CEFTRIAXONE [Concomitant]
     Dosage: UNK
  8. KEPPRA [Concomitant]
     Dosage: UNK
  9. DILANTIN [Suspect]
     Indication: CONVULSION
     Dosage: 25MG IN THE MORNING AND 50MG IN THE EVENING
     Route: 048
     Dates: start: 20080731, end: 20080808
  10. TEGRETOL [Concomitant]
     Dosage: UNK

REACTIONS (11)
  - STEVENS-JOHNSON SYNDROME [None]
  - DEVELOPMENTAL DELAY [None]
  - RICKETS [None]
  - TOXIC EPIDERMAL NECROLYSIS [None]
  - CARDIOMEGALY [None]
  - DEAFNESS NEUROSENSORY [None]
  - LUNG DISORDER [None]
  - GASTROINTESTINAL INJURY [None]
  - UPPER MOTOR NEURONE LESION [None]
  - SPEECH DISORDER DEVELOPMENTAL [None]
  - ABASIA [None]
